FAERS Safety Report 23512868 (Version 3)
Quarter: 2024Q1

REPORT INFORMATION
  Report Type: Spontaneous
  Country: US (occurrence: US)
  Receive Date: 20240212
  Receipt Date: 20240319
  Transmission Date: 20240410
  Serious: No
  Sender: FDA-Public Use
  Company Number: US-PFIZER INC-202400017347

PATIENT
  Age: 14 Year
  Sex: Male
  Weight: 46.27 kg

DRUGS (1)
  1. GENOTROPIN [Suspect]
     Active Substance: SOMATROPIN
     Indication: Growth disorder
     Dosage: UNK

REACTIONS (3)
  - Incorrect dose administered [Unknown]
  - Device information output issue [Unknown]
  - Device malfunction [Unknown]
